FAERS Safety Report 10305586 (Version 1)
Quarter: 2014Q3

REPORT INFORMATION
  Report Type: Report from Study
  Country: GR (occurrence: GR)
  Receive Date: 20140715
  Receipt Date: 20140715
  Transmission Date: 20150326
  Serious: Yes (Other)
  Sender: FDA-Public Use
  Company Number: GR-TEVA-493814ISR

PATIENT

DRUGS (5)
  1. DOXORUBICIN NOS [Suspect]
     Active Substance: DOXORUBICIN
     Dosage: CUMULATIVE DOSE 150-200MG/M2
  2. DOXORUBICIN NOS [Suspect]
     Active Substance: DOXORUBICIN
     Dosage: CUMULATIVE DOSE 300-400MG/M2
  3. CYCLOPHOSPHAMIDE. [Concomitant]
     Active Substance: CYCLOPHOSPHAMIDE
  4. METHYLPREDNISOLONE [Concomitant]
     Active Substance: METHYLPREDNISOLONE
  5. VINCRISTINE [Concomitant]
     Active Substance: VINCRISTINE

REACTIONS (4)
  - Cardiomyopathy [Unknown]
  - Angiopathy [Unknown]
  - Aortic disorder [Unknown]
  - Ejection fraction decreased [Unknown]
